FAERS Safety Report 21136249 (Version 1)
Quarter: 2022Q3

REPORT INFORMATION
  Report Type: Spontaneous
  Country: CA (occurrence: CA)
  Receive Date: 20220727
  Receipt Date: 20220727
  Transmission Date: 20221027
  Serious: Yes (Other)
  Sender: FDA-Public Use
  Company Number: CA-SAMSUNG BIOEPIS-SB-2022-10949

PATIENT
  Age: 43 Year
  Sex: Female

DRUGS (2)
  1. ADALIMUMAB [Suspect]
     Active Substance: ADALIMUMAB
     Indication: Crohn^s disease
     Route: 058
  2. ADALIMUMAB [Suspect]
     Active Substance: ADALIMUMAB
     Route: 058

REACTIONS (20)
  - Abdominal pain lower [Unknown]
  - Fatigue [Unknown]
  - Headache [Unknown]
  - Pain in extremity [Unknown]
  - Dandruff [Unknown]
  - Diarrhoea [Unknown]
  - Dry skin [Unknown]
  - Erythema [Unknown]
  - Feeling abnormal [Unknown]
  - Insomnia [Unknown]
  - Pain [Unknown]
  - Pruritus [Unknown]
  - Rash [Unknown]
  - Rectal haemorrhage [Unknown]
  - Somnolence [Unknown]
  - Ulcer [Unknown]
  - Vision blurred [Unknown]
  - Drug ineffective [Unknown]
  - Device issue [Unknown]
  - Incorrect dose administered by device [Unknown]
